FAERS Safety Report 12499526 (Version 1)
Quarter: 2016Q2

REPORT INFORMATION
  Report Type: Spontaneous
  Country: BR (occurrence: BR)
  Receive Date: 20160627
  Receipt Date: 20160627
  Transmission Date: 20160815
  Serious: Yes (Hospitalization, Other)
  Sender: FDA-Public Use
  Company Number: BR-NOVOPROD-496900

PATIENT
  Age: 56 Year
  Sex: Female

DRUGS (9)
  1. RISPERIDONE. [Concomitant]
     Active Substance: RISPERIDONE
  2. TRADJENTA [Concomitant]
     Active Substance: LINAGLIPTIN
  3. LACTULONA [Concomitant]
  4. GLIFAGE [Concomitant]
     Active Substance: METFORMIN HYDROCHLORIDE
     Dosage: UNK
  5. ALDACTONE [Concomitant]
     Active Substance: SPIRONOLACTONE
  6. LEVEMIR [Suspect]
     Active Substance: INSULIN DETEMIR
     Indication: PRODUCT USED FOR UNKNOWN INDICATION
     Dosage: UNK
     Route: 065
  7. LEVEMIR [Suspect]
     Active Substance: INSULIN DETEMIR
     Dosage: 50 IU
     Route: 065
  8. PROPANOLOL                         /00030001/ [Concomitant]
     Active Substance: PROPRANOLOL HYDROCHLORIDE
  9. LORAX                              /00273201/ [Concomitant]

REACTIONS (4)
  - Blood glucose abnormal [Not Recovered/Not Resolved]
  - Gastric haemorrhage [Unknown]
  - Drug interaction [Unknown]
  - Hepatic cirrhosis [Unknown]

NARRATIVE: CASE EVENT DATE: 201603
